FAERS Safety Report 18261649 (Version 1)
Quarter: 2020Q3

REPORT INFORMATION
  Report Type: Spontaneous
  Country: US (occurrence: US)
  Receive Date: 20200911
  Receipt Date: 20200911
  Transmission Date: 20201103
  Serious: Yes (Disabling)
  Sender: FDA-Public Use
  Company Number: None

PATIENT
  Age: 42 Year
  Sex: Male
  Weight: 72 kg

DRUGS (4)
  1. RESTASIS [Suspect]
     Active Substance: CYCLOSPORINE
     Indication: DRY EYE
     Route: 047
  2. XIIDRA [Concomitant]
     Active Substance: LIFITEGRAST
  3. VITAMIN C [Concomitant]
     Active Substance: ASCORBIC ACID
  4. KIDS VITAMINS [Concomitant]

REACTIONS (4)
  - Influenza [None]
  - Immunosuppression [None]
  - Skin discolouration [None]
  - Psoriasis [None]

NARRATIVE: CASE EVENT DATE: 20180201
